FAERS Safety Report 15821440 (Version 1)
Quarter: 2019Q1

REPORT INFORMATION
  Report Type: Spontaneous
  Country: US (occurrence: US)
  Receive Date: 20190114
  Receipt Date: 20190114
  Transmission Date: 20190417
  Serious: Yes (Other)
  Sender: FDA-Public Use
  Company Number: US-JNJFOC-20190110693

PATIENT
  Age: 26 Year
  Sex: Female
  Weight: 58.97 kg

DRUGS (7)
  1. EPIDIOLEX [Suspect]
     Active Substance: CANNABIDIOL
     Indication: SEIZURE
     Route: 065
     Dates: start: 201901
  2. RISPERIDONE. [Concomitant]
     Active Substance: RISPERIDONE
     Indication: ANXIETY
     Route: 065
  3. LAMICTAL [Suspect]
     Active Substance: LAMOTRIGINE
     Indication: SEIZURE
     Route: 065
  4. CLARITIN [Concomitant]
     Active Substance: LORATADINE
     Indication: SEASONAL ALLERGY
     Route: 065
  5. CLARITIN [Concomitant]
     Active Substance: LORATADINE
     Indication: NASAL CONGESTION
     Route: 065
  6. ORTHO MICRONOR [Suspect]
     Active Substance: NORETHINDRONE
     Indication: SEIZURE PROPHYLAXIS
     Route: 048
  7. DIAMOX SEQUELS [Suspect]
     Active Substance: ACETAZOLAMIDE
     Indication: SEIZURE
     Route: 065

REACTIONS (3)
  - Product use in unapproved indication [Unknown]
  - Seizure [Recovered/Resolved]
  - Off label use [Unknown]

NARRATIVE: CASE EVENT DATE: 20190107
